FAERS Safety Report 14698016 (Version 2)
Quarter: 2018Q3

REPORT INFORMATION
  Report Type: Report from Study
  Country: JP (occurrence: JP)
  Receive Date: 20180330
  Receipt Date: 20180903
  Transmission Date: 20181010
  Serious: Yes (Hospitalization, Other)
  Sender: FDA-Public Use
  Company Number: JP-ROCHE-2093394

PATIENT
  Age: 69 Year
  Sex: Male

DRUGS (30)
  1. TACROLIMUS MONOHYDRATE [Suspect]
     Active Substance: TACROLIMUS
     Dosage: SERUM TROUGH CONCENTRATION: 5.2?7.4NG/ML
     Route: 048
     Dates: start: 20170416, end: 20170516
  2. SOLU?MEDROL [Concomitant]
     Active Substance: METHYLPREDNISOLONE SODIUM SUCCINATE
     Route: 042
     Dates: start: 20170106, end: 20170107
  3. BASILIXIMAB [Concomitant]
     Active Substance: BASILIXIMAB
     Indication: PROPHYLAXIS AGAINST TRANSPLANT REJECTION
     Route: 042
     Dates: start: 20170105, end: 20170105
  4. LIVALO [Concomitant]
     Active Substance: PITAVASTATIN CALCIUM
     Route: 048
     Dates: end: 20170105
  5. TAKECAB [Concomitant]
     Active Substance: VONOPRAZAN FUMURATE
     Route: 048
     Dates: end: 20170105
  6. RITUXIMAB. [Suspect]
     Active Substance: RITUXIMAB
     Indication: PROPHYLAXIS AGAINST TRANSPLANT REJECTION
     Dosage: ONE TIME DOSE
     Route: 041
     Dates: start: 20161221, end: 20161221
  7. TACROLIMUS MONOHYDRATE [Suspect]
     Active Substance: TACROLIMUS
     Indication: PROPHYLAXIS AGAINST TRANSPLANT REJECTION
     Dosage: SERUM TROUGH CONCENTRATION: 5.9?9.0NG/ML
     Route: 048
     Dates: start: 20161220, end: 20170106
  8. TACROLIMUS MONOHYDRATE [Suspect]
     Active Substance: TACROLIMUS
     Dosage: SERUM TROUGH CONCENTRATION: 3.6?7.5NG/ML
     Route: 048
     Dates: start: 20170107, end: 20170109
  9. TACROLIMUS MONOHYDRATE [Suspect]
     Active Substance: TACROLIMUS
     Dosage: SERUM TROUGH CONCENTRATION: 2.6?5.9NG/ML
     Route: 048
     Dates: start: 20170110, end: 20170115
  10. TERPERAN [Concomitant]
     Active Substance: METOCLOPRAMIDE HYDROCHLORIDE
     Indication: PREMEDICATION
     Route: 042
     Dates: start: 20161221, end: 20161221
  11. BASILIXIMAB [Concomitant]
     Active Substance: BASILIXIMAB
     Route: 042
     Dates: start: 20170109, end: 20170109
  12. RENAGEL [Concomitant]
     Active Substance: SEVELAMER HYDROCHLORIDE
     Route: 048
     Dates: end: 20170105
  13. FOSRENOL [Concomitant]
     Active Substance: LANTHANUM CARBONATE
     Route: 048
     Dates: end: 20170103
  14. MYCOPHENOLATE MOFETIL. [Concomitant]
     Active Substance: MYCOPHENOLATE MOFETIL
     Route: 048
     Dates: start: 20170425
  15. BRUFEN [Concomitant]
     Active Substance: IBUPROFEN
     Indication: PREMEDICATION
     Route: 048
     Dates: start: 20161221, end: 20161221
  16. MYCOPHENOLATE MOFETIL. [Concomitant]
     Active Substance: MYCOPHENOLATE MOFETIL
     Indication: PROPHYLAXIS AGAINST TRANSPLANT REJECTION
     Route: 048
     Dates: start: 20161220, end: 20161225
  17. MYCOPHENOLATE MOFETIL. [Concomitant]
     Active Substance: MYCOPHENOLATE MOFETIL
     Route: 048
     Dates: start: 20170201, end: 20170424
  18. KENKETU GLOVENIN?I [Concomitant]
     Active Substance: HUMAN IMMUNOGLOBULIN G
     Indication: PROPHYLAXIS AGAINST TRANSPLANT REJECTION
     Route: 042
     Dates: start: 20170105, end: 20170106
  19. CERTICAN [Concomitant]
     Active Substance: EVEROLIMUS
     Indication: PROPHYLAXIS AGAINST TRANSPLANT REJECTION
     Route: 048
     Dates: start: 20161220
  20. REGPARA [Concomitant]
     Active Substance: CINACALCET HYDROCHLORIDE
     Route: 048
     Dates: end: 20170103
  21. MYCOPHENOLATE MOFETIL. [Concomitant]
     Active Substance: MYCOPHENOLATE MOFETIL
     Route: 048
     Dates: start: 20161226, end: 20170131
  22. FEBURIC [Concomitant]
     Active Substance: FEBUXOSTAT
     Route: 048
     Dates: end: 20170105
  23. DAIPHEN [Concomitant]
     Active Substance: SULFAMETHOXAZOLE\TRIMETHOPRIM
     Indication: INFECTION PROPHYLAXIS
     Route: 048
     Dates: start: 20170115, end: 20170404
  24. TACROLIMUS MONOHYDRATE [Suspect]
     Active Substance: TACROLIMUS
     Dosage: SERUM TROUGH CONCENTRATION: 2.2?2.5NG/ML
     Route: 048
     Dates: start: 20170517
  25. TACROLIMUS MONOHYDRATE [Suspect]
     Active Substance: TACROLIMUS
     Route: 048
  26. CELESTAMINE (JAPAN) [Concomitant]
     Active Substance: BETAMETHASONE\DEXCHLORPHENIRAMINE MALEATE
     Indication: PREMEDICATION
     Route: 048
     Dates: start: 20161221, end: 20161221
  27. SOLU?MEDROL [Concomitant]
     Active Substance: METHYLPREDNISOLONE SODIUM SUCCINATE
     Indication: PROPHYLAXIS AGAINST TRANSPLANT REJECTION
     Route: 042
     Dates: start: 20170105, end: 20170105
  28. BLOPRESS [Concomitant]
     Active Substance: CANDESARTAN CILEXETIL
     Route: 048
     Dates: end: 20170105
  29. MUCOSTA [Concomitant]
     Active Substance: REBAMIPIDE
     Route: 048
     Dates: end: 20170105
  30. FERROUS CITRATE [Concomitant]
     Active Substance: FERROUS CITRATE
     Indication: ANAEMIA
     Route: 048
     Dates: start: 20170522

REACTIONS (6)
  - Hypercalcaemia [Not Recovered/Not Resolved]
  - Cellulitis [Recovered/Resolved]
  - Hypertension [Recovered/Resolved]
  - Urinary tract infection [Recovering/Resolving]
  - Dyspepsia [Unknown]
  - Diabetes mellitus [Not Recovered/Not Resolved]

NARRATIVE: CASE EVENT DATE: 20170112
